FAERS Safety Report 25105053 (Version 1)
Quarter: 2025Q1

REPORT INFORMATION
  Report Type: Report from Study
  Country: US (occurrence: US)
  Receive Date: 20250321
  Receipt Date: 20250321
  Transmission Date: 20250409
  Serious: Yes (Other)
  Sender: ACADIA PHARMACEUTICALS
  Company Number: US-ACADIA PHARMACEUTICALS INC.-ACA-2025-PIM-003208

PATIENT
  Sex: Female

DRUGS (15)
  1. NUPLAZID [Suspect]
     Active Substance: PIMAVANSERIN TARTRATE
     Indication: Parkinson^s disease
     Dosage: 34 MILLIGRAM, QD
     Route: 048
     Dates: start: 20211206
  2. ASCORBIC ACID [Concomitant]
     Active Substance: ASCORBIC ACID
  3. VITAMIN B12 [Concomitant]
     Active Substance: CYANOCOBALAMIN
  4. CALCIUM PLUS D3 [Concomitant]
  5. CARBIDOPA\LEVODOPA [Concomitant]
     Active Substance: CARBIDOPA\LEVODOPA
  6. ENTACAPONE [Concomitant]
     Active Substance: ENTACAPONE
  7. MAGNESIUM [Concomitant]
     Active Substance: MAGNESIUM
  8. MIRAPEX [Concomitant]
     Active Substance: PRAMIPEXOLE DIHYDROCHLORIDE
  9. VITAMINS NOS [Concomitant]
     Active Substance: VITAMINS
  10. NOURIANZ [Concomitant]
     Active Substance: ISTRADEFYLLINE
  11. DIETARY SUPPLEMENT [Concomitant]
     Active Substance: DIETARY SUPPLEMENT
  12. RYTARY [Concomitant]
     Active Substance: CARBIDOPA\LEVODOPA
  13. SINEMET CR [Concomitant]
     Active Substance: CARBIDOPA\LEVODOPA
  14. TYLENOL [Concomitant]
     Active Substance: ACETAMINOPHEN
  15. ZINC [Concomitant]
     Active Substance: ZINC

REACTIONS (1)
  - Hip fracture [Unknown]
